FAERS Safety Report 12154922 (Version 1)
Quarter: 2016Q1

REPORT INFORMATION
  Report Type: Spontaneous
  Country: US (occurrence: US)
  Receive Date: 20160307
  Receipt Date: 20160307
  Transmission Date: 20160526
  Serious: Yes (Death)
  Sender: FDA-Public Use
  Company Number: US-BRAINTREE LABORATORIES-160167

PATIENT
  Age: 66 Year
  Sex: Male
  Weight: 62.14 kg

DRUGS (1)
  1. GOLYTELY [Suspect]
     Active Substance: POLYETHYLENE GLYCOL 3350\POTASSIUM CHLORIDE\SODIUM BICARBONATE\SODIUM CHLORIDE\SODIUM SULFATE ANHYDROUS
     Indication: OFF LABEL USE
     Dosage: ~1.5 L
     Route: 048
     Dates: start: 20151111, end: 20151111

REACTIONS (3)
  - Fatigue [None]
  - Arteriosclerosis [None]
  - Diarrhoea [None]

NARRATIVE: CASE EVENT DATE: 20151113
